FAERS Safety Report 5530094-1 (Version None)
Quarter: 2007Q4

REPORT INFORMATION
  Report Type: 
  Country: None (occurrence: None)
  Receive Date: 20071119
  Receipt Date: 20070816
  Transmission Date: 20080405
  Serious: No
  Sender: FDA-Public Use
  Company Number: TPA2007A01809

PATIENT
  Age: 85 Year
  Sex: Female
  Weight: 68.9467 kg

DRUGS (5)
  1. ROZEREM [Suspect]
     Dosage: PER ORAL
     Route: 048
  2. LOTREL [Concomitant]
  3. METOPROLOL TARTRATE [Concomitant]
  4. ACETYLSALICYLIC ACID SRT [Concomitant]
  5. ATORVASTATIN CALCIUM [Concomitant]

REACTIONS (1)
  - HEADACHE [None]
